FAERS Safety Report 8098732-X (Version None)
Quarter: 2012Q1

REPORT INFORMATION
  Report Type: 
  Country: None (occurrence: None)
  Receive Date: 20120131
  Receipt Date: 20120126
  Transmission Date: 20120608
  Serious: Yes (Hospitalization, Disabling, Other)
  Sender: FDA-Public Use
  Company Number: US-PFIZER INC-2011239361

PATIENT
  Sex: Male
  Weight: 132 kg

DRUGS (4)
  1. LIPITOR [Suspect]
     Indication: BLOOD CHOLESTEROL INCREASED
     Dosage: 20 MG, 1X/DAY
     Route: 048
  2. WARFARIN [Concomitant]
     Dosage: UNK
  3. LIPITOR [Suspect]
     Dosage: 10 MG, DAILY
  4. LYRICA [Concomitant]
     Indication: NEUROPATHY PERIPHERAL
     Dosage: 75 MG, DAILY

REACTIONS (7)
  - H1N1 INFLUENZA [None]
  - PARALYSIS [None]
  - BLOOD CHOLESTEROL INCREASED [None]
  - LOSS OF CONSCIOUSNESS [None]
  - NEUROPATHY PERIPHERAL [None]
  - PAIN IN EXTREMITY [None]
  - COMA [None]
